FAERS Safety Report 10149222 (Version 1)
Quarter: 2014Q2

REPORT INFORMATION
  Report Type: Spontaneous
  Country: US (occurrence: None)
  Receive Date: 20140501
  Receipt Date: 20140501
  Transmission Date: 20141212
  Serious: Yes (Hospitalization)
  Sender: FDA-Public Use
  Company Number: None

PATIENT
  Age: 46 Year
  Sex: Female

DRUGS (12)
  1. PROCRIT [Suspect]
     Route: 058
     Dates: start: 20140315
  2. HUMALOG [Concomitant]
  3. GABAPENTIN [Concomitant]
  4. PROCARDIA [Concomitant]
  5. IRON [Concomitant]
  6. LISINOPRIL [Concomitant]
  7. SUPER B COMPLEX [Concomitant]
  8. ASPIRIN [Concomitant]
  9. DEMADEX [Concomitant]
  10. VITAMIN D [Concomitant]
  11. ZILOPRAM [Concomitant]
  12. LIPITOR [Concomitant]

REACTIONS (1)
  - Investigation [None]
